FAERS Safety Report 23202633 (Version 3)
Quarter: 2023Q4

REPORT INFORMATION
  Report Type: Spontaneous
  Country: CA (occurrence: CA)
  Receive Date: 20231120
  Receipt Date: 20231223
  Transmission Date: 20240110
  Serious: Yes (Other)
  Sender: FDA-Public Use
  Company Number: CA-ABBVIE-5493448

PATIENT
  Age: 29 Year
  Sex: Female

DRUGS (2)
  1. BOTOX COSMETIC [Suspect]
     Active Substance: ONABOTULINUMTOXINA
     Indication: Excessive gingival display
     Dosage: TIME INTERVAL: AS NECESSARY: LOWER OUTSIDE CORNERS OF NOSE
     Route: 065
     Dates: start: 20231026, end: 20231026
  2. OMNARIS [Concomitant]
     Active Substance: CICLESONIDE
     Indication: Product used for unknown indication
     Dosage: TIME INTERVAL: AS NECESSARY: STEROID

REACTIONS (5)
  - Deafness unilateral [Not Recovered/Not Resolved]
  - Ear discomfort [Unknown]
  - Hypoaesthesia [Unknown]
  - Hypoacusis [Unknown]
  - Off label use [Unknown]

NARRATIVE: CASE EVENT DATE: 20230101
